FAERS Safety Report 10453291 (Version 1)
Quarter: 2014Q3

REPORT INFORMATION
  Report Type: Spontaneous
  Country: US (occurrence: US)
  Receive Date: 20140915
  Receipt Date: 20140915
  Transmission Date: 20150326
  Serious: Yes (Death, Hospitalization)
  Sender: FDA-Public Use
  Company Number: US-TEVA-508025USA

PATIENT
  Age: 36 Year
  Sex: Female

DRUGS (1)
  1. DILTIAZEM [Suspect]
     Active Substance: DILTIAZEM
     Indication: CHEST PAIN
     Dosage: 20 DILTIAZEM SR 120MG
     Route: 065

REACTIONS (2)
  - Accidental overdose [Fatal]
  - Medication error [Fatal]
